FAERS Safety Report 25463924 (Version 1)
Quarter: 2025Q2

REPORT INFORMATION
  Report Type: Report from Study
  Country: CA (occurrence: CA)
  Receive Date: 20250621
  Receipt Date: 20250621
  Transmission Date: 20250716
  Serious: Yes (Death, Other)
  Sender: IPSEN BIOPHARMACEUTICALS, INC.
  Company Number: CA-IPSEN Group, Research and Development-2024-25699

PATIENT
  Age: 91 Year
  Sex: Female

DRUGS (20)
  1. LANREOTIDE ACETATE [Suspect]
     Active Substance: LANREOTIDE ACETATE
     Indication: Gastroenteropancreatic neuroendocrine tumour disease
     Dosage: DEEP-SC
     Route: 058
     Dates: start: 20190521
  2. LANREOTIDE ACETATE [Suspect]
     Active Substance: LANREOTIDE ACETATE
     Route: 065
     Dates: start: 20240918
  3. LANREOTIDE ACETATE [Suspect]
     Active Substance: LANREOTIDE ACETATE
     Dosage: DEEP-SC
     Route: 058
  4. CHOLECALCIFEROL [Concomitant]
     Active Substance: CHOLECALCIFEROL
     Dosage: PO DIE
     Route: 048
  5. MYRBETRIQ [Concomitant]
     Active Substance: MIRABEGRON
     Dosage: PO DIE
     Route: 048
  6. SYNTHROID [Concomitant]
     Active Substance: LEVOTHYROXINE SODIUM
     Dosage: PO DIE
     Route: 048
  7. PANTOPRAZOLE [Concomitant]
     Active Substance: PANTOPRAZOLE
     Dosage: PO BID
     Route: 048
  8. AMLODIPINE [Concomitant]
     Active Substance: AMLODIPINE BESYLATE
     Dosage: PO DIE
     Route: 048
  9. SULFAMETHOXAZOLE\TRIMETHOPRIM [Concomitant]
     Active Substance: SULFAMETHOXAZOLE\TRIMETHOPRIM
  10. LORAZEPAM [Concomitant]
     Active Substance: LORAZEPAM
  11. PROLIA [Concomitant]
     Active Substance: DENOSUMAB
     Route: 058
  12. NAPHAZOLINE HYDROCHLORIDE [Concomitant]
     Active Substance: NAPHAZOLINE HYDROCHLORIDE
  13. ACETAMINOPHEN [Concomitant]
     Active Substance: ACETAMINOPHEN
  14. BILASTINE [Concomitant]
     Active Substance: BILASTINE
     Dosage: PO BID PRN
     Route: 048
  15. VAGIFEM [Concomitant]
     Active Substance: ESTRADIOL
  16. PREGABALIN [Concomitant]
     Active Substance: PREGABALIN
  17. HYDROMORPHONE [Concomitant]
     Active Substance: HYDROMORPHONE
  18. MOMETASONE [Concomitant]
     Active Substance: MOMETASONE
  19. MORPHINE SULFATE [Concomitant]
     Active Substance: MORPHINE SULFATE
     Route: 048
  20. POLYETHYLENE GLYCOL 3350 [Concomitant]
     Active Substance: POLYETHYLENE GLYCOL 3350
     Dosage: PO DIE
     Route: 048

REACTIONS (4)
  - Renal neoplasm [Fatal]
  - Malignant neoplasm progression [Fatal]
  - Metastases to liver [Fatal]
  - Dyspepsia [Unknown]

NARRATIVE: CASE EVENT DATE: 20240101
